FAERS Safety Report 18026883 (Version 5)
Quarter: 2021Q4

REPORT INFORMATION
  Report Type: Spontaneous
  Country: US (occurrence: US)
  Receive Date: 20200715
  Receipt Date: 20211117
  Transmission Date: 20220303
  Serious: Yes (Other)
  Sender: FDA-Public Use
  Company Number: US-GILEAD-2020-0479893

PATIENT
  Sex: Female

DRUGS (30)
  1. VIREAD [Suspect]
     Active Substance: TENOFOVIR DISOPROXIL FUMARATE
     Indication: HIV infection
     Dosage: UNK
     Route: 048
     Dates: start: 2011, end: 2015
  2. TRUVADA [Suspect]
     Active Substance: EMTRICITABINE\TENOFOVIR DISOPROXIL FUMARATE
     Indication: HIV infection
     Dosage: UNK
     Route: 048
     Dates: start: 2011, end: 2015
  3. TRUVADA [Suspect]
     Active Substance: EMTRICITABINE\TENOFOVIR DISOPROXIL FUMARATE
     Dosage: UNK
     Route: 048
     Dates: start: 2011, end: 2011
  4. ATRIPLA [Suspect]
     Active Substance: EFAVIRENZ\EMTRICITABINE\TENOFOVIR DISOPROXIL FUMARATE
     Indication: HIV infection
     Dosage: UNK
     Route: 048
     Dates: start: 2011, end: 2015
  5. GENVOYA [Concomitant]
     Active Substance: COBICISTAT\ELVITEGRAVIR\EMTRICITABINE\TENOFOVIR ALAFENAMIDE FUMARATE
  6. CALCIUM [Concomitant]
     Active Substance: CALCIUM
     Dosage: UNK
     Dates: start: 2004
  7. ACETAMINOPHEN [Concomitant]
     Active Substance: ACETAMINOPHEN
  8. AMOXICILLIN [Concomitant]
     Active Substance: AMOXICILLIN
  9. AMPICILLIN [Concomitant]
     Active Substance: AMPICILLIN
  10. ASPIRIN [Concomitant]
     Active Substance: ASPIRIN
  11. BACTRIM [Concomitant]
     Active Substance: SULFAMETHOXAZOLE\TRIMETHOPRIM
  12. TAGAMET [Concomitant]
     Active Substance: CIMETIDINE
  13. CORTISONE [Concomitant]
     Active Substance: CORTISONE
  14. CELEBREX [Concomitant]
     Active Substance: CELECOXIB
  15. HEPARIN [Concomitant]
     Active Substance: HEPARIN SODIUM
  16. OMEPRAZOLE [Concomitant]
     Active Substance: OMEPRAZOLE
  17. PENICILLIN [Concomitant]
     Active Substance: PENICILLIN
  18. PRAVASTATIN SODIUM [Concomitant]
     Active Substance: PRAVASTATIN SODIUM
  19. PREDNISONE [Concomitant]
     Active Substance: PREDNISONE
  20. ZANTAC [Concomitant]
     Active Substance: RANITIDINE HYDROCHLORIDE
  21. TACROLIMUS [Concomitant]
     Active Substance: TACROLIMUS
  22. TETRACYCLINE [Concomitant]
     Active Substance: TETRACYCLINE
  23. EMTRIVA [Concomitant]
     Active Substance: EMTRICITABINE
  24. EPIVIR [Concomitant]
     Active Substance: LAMIVUDINE
  25. ISENTRESS [Concomitant]
     Active Substance: RALTEGRAVIR POTASSIUM
     Dosage: UNK
     Route: 065
     Dates: start: 2015, end: 2016
  26. NORVIR [Concomitant]
     Active Substance: RITONAVIR
  27. PREZISTA [Concomitant]
     Active Substance: DARUNAVIR ETHANOLATE
  28. RETROVIR [Concomitant]
     Active Substance: ZIDOVUDINE
     Dosage: UNK
     Route: 065
     Dates: start: 2011
  29. SUSTIVA [Concomitant]
     Active Substance: EFAVIRENZ
  30. ZERIT [Concomitant]
     Active Substance: STAVUDINE

REACTIONS (7)
  - Chronic kidney disease [Unknown]
  - End stage renal disease [Not Recovered/Not Resolved]
  - Renal failure [Unknown]
  - Tooth loss [Not Recovered/Not Resolved]
  - Bone density decreased [Unknown]
  - Pain [Unknown]
  - Emotional distress [Unknown]

NARRATIVE: CASE EVENT DATE: 20150101
